FAERS Safety Report 9173356 (Version 1)
Quarter: 2013Q1

REPORT INFORMATION
  Report Type: Spontaneous
  Country: US (occurrence: None)
  Receive Date: 20130319
  Receipt Date: 20130319
  Transmission Date: 20140127
  Serious: No
  Sender: FDA-Public Use
  Company Number: None

PATIENT
  Age: 73 Year
  Sex: Female
  Weight: 61.69 kg

DRUGS (1)
  1. MONTELLUKAST [Suspect]
     Dates: start: 20121120, end: 20121228

REACTIONS (2)
  - Product odour abnormal [None]
  - Nausea [None]
